FAERS Safety Report 6970527-7 (Version None)
Quarter: 2010Q3

REPORT INFORMATION
  Report Type: 
  Country: None (occurrence: None)
  Receive Date: 20100824
  Receipt Date: 20100429
  Transmission Date: 20110219
  Serious: No
  Sender: FDA-Public Use
  Company Number: 308131

PATIENT
  Age: 29 Year
  Sex: Female

DRUGS (1)
  1. VICTOZA [Suspect]
     Indication: OBESITY
     Dosage: 1.8 MG, QD, SUBCUTANEOUS
     Route: 058

REACTIONS (3)
  - NAUSEA [None]
  - OFF LABEL USE [None]
  - VOMITING [None]
